FAERS Safety Report 8027119-0 (Version None)
Quarter: 2012Q1

REPORT INFORMATION
  Report Type: 
  Country: None (occurrence: None)
  Receive Date: 20120106
  Receipt Date: 20120103
  Transmission Date: 20120608
  Serious: Yes (Other)
  Sender: FDA-Public Use
  Company Number: PHFR2011GB007143

PATIENT
  Sex: Male
  Weight: 108 kg

DRUGS (12)
  1. CLOZARIL [Suspect]
     Dosage: 450 MG, DAILY
     Route: 048
     Dates: end: 20111211
  2. CLOZARIL [Suspect]
     Dosage: 800 MG, DAILY
     Dates: start: 20111214, end: 20111217
  3. CLOZARIL [Suspect]
     Dosage: 450 MG, UNK
     Dates: start: 20111217
  4. VALPROATE SODIUM [Concomitant]
     Dosage: 300 MG, BID
     Dates: start: 20111216, end: 20111219
  5. CLOZARIL [Suspect]
     Indication: SCHIZOPHRENIA
     Dosage: 800 MG
     Route: 048
     Dates: start: 20051012, end: 20111210
  6. VALPROATE SODIUM [Concomitant]
     Dosage: 200 MG, BID
     Dates: start: 20111215, end: 20111216
  7. VALPROATE SODIUM [Concomitant]
     Dosage: 600 MG, BID
     Dates: start: 20111222
  8. LANSOPRAZOLE [Concomitant]
     Dosage: 30 MG, DAILY
     Route: 048
  9. ARIPIPRAZOLE [Concomitant]
     Dosage: 200 MG
  10. SIMVASTATIN [Concomitant]
     Dosage: 40 MG
  11. VALPROATE SODIUM [Concomitant]
     Dosage: 100 MG, BID
     Dates: start: 20111214, end: 20111215
  12. VALPROATE SODIUM [Concomitant]
     Dosage: 400 MG, BID
     Dates: start: 20111219

REACTIONS (2)
  - CONVULSION [None]
  - PHARYNGITIS [None]
